FAERS Safety Report 5495187-6 (Version None)
Quarter: 2007Q4

REPORT INFORMATION
  Report Type: 
  Country: None (occurrence: None)
  Receive Date: 20071024
  Receipt Date: 20070725
  Transmission Date: 20080405
  Serious: Yes (Other)
  Sender: FDA-Public Use
  Company Number: FR-GILEAD-2007-0012767

PATIENT
  Sex: Male
  Weight: 73.7 kg

DRUGS (3)
  1. TENOFOVIR DISOPROXIL FUMARATE [Suspect]
     Indication: HEPATITIS B
     Route: 048
     Dates: start: 20070330
  2. MEDIATENSYL [Concomitant]
     Indication: HYPERTENSION
     Dates: start: 20061024
  3. ZOFENIL [Concomitant]
     Indication: HYPERTENSION
     Dates: start: 20070315

REACTIONS (1)
  - FACIAL SPASM [None]
